FAERS Safety Report 23485126 (Version 3)
Quarter: 2024Q1

REPORT INFORMATION
  Report Type: Report from Study
  Country: US (occurrence: US)
  Receive Date: 20240206
  Receipt Date: 20240208
  Transmission Date: 20240410
  Serious: Yes (Other)
  Sender: FDA-Public Use
  Company Number: US-SANOFI-01930539

PATIENT
  Age: 52 Year
  Sex: Female

DRUGS (1)
  1. DUPILUMAB [Suspect]
     Active Substance: DUPILUMAB
     Indication: Eosinophilic oesophagitis
     Dosage: 300 MG
     Route: 058

REACTIONS (9)
  - Injection site urticaria [Not Recovered/Not Resolved]
  - Injection site warmth [Not Recovered/Not Resolved]
  - Throat tightness [Unknown]
  - Throat irritation [Not Recovered/Not Resolved]
  - Cough [Unknown]
  - Pruritus [Not Recovered/Not Resolved]
  - Arthralgia [Recovering/Resolving]
  - Injection site erythema [Not Recovered/Not Resolved]
  - Eye pruritus [Not Recovered/Not Resolved]

NARRATIVE: CASE EVENT DATE: 20240201
